FAERS Safety Report 17994018 (Version 7)
Quarter: 2021Q4

REPORT INFORMATION
  Report Type: Spontaneous
  Country: DE (occurrence: DE)
  Receive Date: 20200708
  Receipt Date: 20211021
  Transmission Date: 20220303
  Serious: Yes (Life-Threatening, Other)
  Sender: FDA-Public Use
  Company Number: DE-BAYER-2020-126581

PATIENT
  Age: 30 Year
  Sex: Male

DRUGS (16)
  1. VALPROIC ACID [Interacting]
     Active Substance: VALPROIC ACID
     Indication: Seizure
     Dosage: DAILY DOSE GREATER THAN 2000 MG DAILY
     Route: 065
  2. VALPROIC ACID [Interacting]
     Active Substance: VALPROIC ACID
     Indication: Epilepsy
     Dosage: 2000 MILLIGRAM, QD
     Route: 065
  3. VALPROIC ACID [Interacting]
     Active Substance: VALPROIC ACID
     Indication: Partial seizures
     Dosage: 200 MILLIGRAM, QD
     Route: 065
  4. VALPROIC ACID [Interacting]
     Active Substance: VALPROIC ACID
     Dosage: UNK(UNK, INITIAL DOSE UNKNOWN)
     Route: 065
  5. RIVAROXABAN [Interacting]
     Active Substance: RIVAROXABAN
     Indication: Deep vein thrombosis
     Dosage: 15 MILLIGRAM, QD
     Route: 048
  6. RIVAROXABAN [Interacting]
     Active Substance: RIVAROXABAN
     Indication: Epilepsy
     Dosage: 20 MILLIGRAM
     Route: 048
  7. RIVAROXABAN [Interacting]
     Active Substance: RIVAROXABAN
     Indication: Deep vein thrombosis
     Dosage: 20 MILLIGRAM, QD
     Route: 065
  8. RIVAROXABAN [Interacting]
     Active Substance: RIVAROXABAN
     Indication: Anticoagulant therapy
     Dosage: 15 MILLIGRAM, QD
     Route: 065
  9. XARELTO [Suspect]
     Active Substance: RIVAROXABAN
     Indication: Deep vein thrombosis
     Dosage: 15 MILLIGRAM, QD
  10. XARELTO [Suspect]
     Active Substance: RIVAROXABAN
     Dosage: 20 MILLIGRAM
  11. LAMOTRIGINE [Concomitant]
     Active Substance: LAMOTRIGINE
     Indication: Epilepsy
     Dosage: 200 MILLIGRAM, QD(DAILY DOSE 200 MG)
     Route: 065
  12. LAMOTRIGINE [Concomitant]
     Active Substance: LAMOTRIGINE
     Indication: Partial seizures
     Dosage: 400 MILLIGRAM, QD(DAILY DOSE 400 MG)
     Route: 065
  13. LAMOTRIGINE [Concomitant]
     Active Substance: LAMOTRIGINE
     Indication: Seizure
     Dosage: 2000 MILLIGRAM, QD
     Route: 065
  14. LAMOTRIGINE [Concomitant]
     Active Substance: LAMOTRIGINE
     Dosage: UNK
  15. PIPAMPERONE [Concomitant]
     Active Substance: PIPAMPERONE
     Indication: Epilepsy
     Dosage: 20 MILLIGRAM, QD,FOLLOW-UP DAILY DOSE 20 MG
  16. PERAMPANEL [Concomitant]
     Active Substance: PERAMPANEL
     Indication: Epilepsy
     Dosage: FOLLOW-UP DAILY DOSE: 8 MG

REACTIONS (7)
  - Deep vein thrombosis [Unknown]
  - Anticoagulation drug level decreased [Recovered/Resolved]
  - Drug interaction [Unknown]
  - Inhibitory drug interaction [Unknown]
  - Off label use [Unknown]
  - Hyperhomocysteinaemia [Unknown]
  - Drug ineffective [Unknown]
